FAERS Safety Report 12905180 (Version 2)
Quarter: 2016Q4

REPORT INFORMATION
  Report Type: Report from Study
  Country: IE (occurrence: IE)
  Receive Date: 20161102
  Receipt Date: 20161201
  Transmission Date: 20170207
  Serious: Yes (Hospitalization)
  Sender: FDA-Public Use
  Company Number: IE-ELI_LILLY_AND_COMPANY-IE201610009307

PATIENT
  Sex: Female

DRUGS (11)
  1. CLARITHROMYCIN. [Concomitant]
     Active Substance: CLARITHROMYCIN
     Dosage: 500 MG, BID
  2. PREDNISOLONE. [Concomitant]
     Active Substance: PREDNISOLONE
     Dosage: 15 MG, QD
  3. FORSTEO [Suspect]
     Active Substance: TERIPARATIDE
     Indication: PRODUCT USED FOR UNKNOWN INDICATION
     Dosage: 20 UG, UNKNOWN
     Route: 065
     Dates: start: 20161020
  4. OXYCONTIN [Concomitant]
     Active Substance: OXYCODONE HYDROCHLORIDE
     Dosage: 30 MG, BID
  5. SERC                               /00034201/ [Concomitant]
     Dosage: 8 MG, QD
  6. BECLAZONE [Concomitant]
     Dosage: 1 MG, BID
  7. AVAMYS [Concomitant]
     Active Substance: FLUTICASONE FUROATE
     Dosage: 27.5 MG, QD
  8. SEROXAT [Concomitant]
     Active Substance: PAROXETINE HYDROCHLORIDE
     Dosage: 20 MG, QD
  9. LYRICA [Concomitant]
     Active Substance: PREGABALIN
     Dosage: 50 MG, QD
  10. OMEPRAZOLE. [Concomitant]
     Active Substance: OMEPRAZOLE
     Dosage: 20 MG, QD
  11. MONTELUKAST [Concomitant]
     Active Substance: MONTELUKAST SODIUM
     Dosage: 10 MG, QD

REACTIONS (1)
  - Back pain [Not Recovered/Not Resolved]
